FAERS Safety Report 16773731 (Version 1)
Quarter: 2019Q3

REPORT INFORMATION
  Report Type: Spontaneous
  Country: US (occurrence: US)
  Receive Date: 20190904
  Receipt Date: 20190904
  Transmission Date: 20191005
  Serious: Yes (Hospitalization)
  Sender: FDA-Public Use
  Company Number: None

PATIENT
  Age: 30 Year
  Sex: Female
  Weight: 65.77 kg

DRUGS (1)
  1. KYLEENA [Suspect]
     Active Substance: LEVONORGESTREL
     Dates: start: 20190524, end: 20190603

REACTIONS (5)
  - Ectopic pregnancy [None]
  - Pregnancy with contraceptive device [None]
  - Menorrhagia [None]
  - Uterine dilation and curettage [None]
  - Dysmenorrhoea [None]

NARRATIVE: CASE EVENT DATE: 20090524
